FAERS Safety Report 5008398-0 (Version None)
Quarter: 2006Q1

REPORT INFORMATION
  Report Type: 
  Country: None (occurrence: None)
  Receive Date: 20060331
  Receipt Date: 20050915
  Transmission Date: 20060701
  Serious: Yes (Hospitalization)
  Sender: FDA-Public Use
  Company Number: US150667

PATIENT
  Sex: Male
  Weight: 70.8 kg

DRUGS (14)
  1. NEULASTA [Suspect]
     Indication: CHEMOTHERAPY
     Dosage: 6 MG, 1 IN 3 WEEKS, SC
     Route: 058
     Dates: start: 20041001, end: 20041001
  2. PACLITAXEL [Suspect]
     Dosage: IV
     Route: 042
     Dates: start: 20040930
  3. TRIMETHOPRIM + SULFAMETHOXAZOLE [Concomitant]
  4. DILTIAZEM HYDROCHLORIDE [Concomitant]
  5. TUMS [Concomitant]
  6. SUCRALFATE [Concomitant]
  7. CIMETIDINE [Concomitant]
  8. CLONIDINE [Concomitant]
  9. FOLIC ACID [Concomitant]
  10. PALONOSETRON HYDROCHLORIDE [Concomitant]
  11. DEXAMETHASONE TAB [Concomitant]
  12. DIPHENHYDRAMINE HYDROCHLORIDE [Concomitant]
  13. CARBOPLATIN [Concomitant]
  14. CIMETIDINE [Concomitant]

REACTIONS (2)
  - BONE PAIN [None]
  - PYREXIA [None]
